FAERS Safety Report 9843179 (Version 1)
Quarter: 2013Q4

REPORT INFORMATION
  Report Type: Spontaneous
  Country: US (occurrence: None)
  Receive Date: 20131219
  Receipt Date: 20131219
  Transmission Date: 20140711
  Serious: Yes (Other)
  Sender: FDA-Public Use
  Company Number: 163-20785-13023452

PATIENT
  Sex: Female

DRUGS (1)
  1. THALOMID [Suspect]
     Indication: PRURIGO
     Route: 048
     Dates: start: 201302

REACTIONS (1)
  - Hypersensitivity [None]
